FAERS Safety Report 15843746 (Version 3)
Quarter: 2019Q1

REPORT INFORMATION
  Report Type: Report from Study
  Country: FR (occurrence: FR)
  Receive Date: 20190118
  Receipt Date: 20190322
  Transmission Date: 20190417
  Serious: Yes (Hospitalization, Other)
  Sender: FDA-Public Use
  Company Number: FR-ASTRAZENECA-2018SF00895

PATIENT
  Age: 19330 Day
  Sex: Male
  Weight: 61 kg

DRUGS (7)
  1. DURVALUMAB. [Suspect]
     Active Substance: DURVALUMAB
     Indication: NON-SMALL CELL LUNG CANCER STAGE III
     Dosage: 610 MILLIGRAMS
     Route: 042
     Dates: start: 20180816, end: 20181009
  2. DURVALUMAB. [Suspect]
     Active Substance: DURVALUMAB
     Indication: NON-SMALL CELL LUNG CANCER STAGE III
     Dosage: 625 MILLIGRAMS
     Route: 042
     Dates: start: 20180718
  3. DURVALUMAB. [Suspect]
     Active Substance: DURVALUMAB
     Indication: NON-SMALL CELL LUNG CANCER STAGE III
     Dosage: 610 MILLIGRAMS
     Route: 042
     Dates: start: 20181009, end: 20181009
  4. ALPRAZOLAM. [Concomitant]
     Active Substance: ALPRAZOLAM
     Indication: ANXIETY
     Route: 065
     Dates: start: 20180401
  5. AERIUS [Concomitant]
     Indication: PRURITUS
     Route: 048
     Dates: start: 20180503
  6. DURVALUMAB. [Suspect]
     Active Substance: DURVALUMAB
     Indication: NON-SMALL CELL LUNG CANCER STAGE III
     Dosage: 620MILLIGRAMS
     Route: 042
     Dates: start: 20180802
  7. XANAX [Concomitant]
     Active Substance: ALPRAZOLAM
     Indication: ANXIETY
     Route: 048
     Dates: start: 20180503

REACTIONS (6)
  - Weight decreased [Recovered/Resolved]
  - Pancreatitis [Recovered/Resolved]
  - Electrocardiogram QT prolonged [Recovered/Resolved]
  - General physical health deterioration [Recovered/Resolved]
  - Fatigue [Unknown]
  - Diarrhoea [Recovered/Resolved]

NARRATIVE: CASE EVENT DATE: 20180802
